FAERS Safety Report 16678359 (Version 5)
Quarter: 2019Q4

REPORT INFORMATION
  Report Type: Spontaneous
  Country: US (occurrence: US)
  Receive Date: 20190807
  Receipt Date: 20191114
  Transmission Date: 20200122
  Serious: No
  Sender: FDA-Public Use
  Company Number: US-PFIZER INC-2019335453

PATIENT
  Age: 37 Year
  Sex: Female
  Weight: 90.72 kg

DRUGS (7)
  1. FLECTOR [Suspect]
     Active Substance: DICLOFENAC EPOLAMINE
     Indication: BACK PAIN
     Dosage: 1 DF, 2X/DAY (1 PATCH 2 TIMES A DAY (2 PATCHES A DAY)
     Route: 062
     Dates: start: 2007
  2. FLECTOR [Suspect]
     Active Substance: DICLOFENAC EPOLAMINE
     Indication: EXOSTOSIS
  3. FLECTOR [Suspect]
     Active Substance: DICLOFENAC EPOLAMINE
     Indication: JOINT SWELLING
  4. FLECTOR [Suspect]
     Active Substance: DICLOFENAC EPOLAMINE
     Indication: ARTHRALGIA
     Dosage: 2 DF, AS NEEDED [2 PATCHES EVERY 12 HOURS AS NEEDED]
     Dates: start: 1998
  5. FLECTOR [Suspect]
     Active Substance: DICLOFENAC EPOLAMINE
     Indication: ARTHRALGIA
     Dosage: 2 DF, 2X/DAY (2 IN THE MORNING AND 2 AT NIGHT AS NEEDED)
     Route: 062
  6. FLECTOR [Suspect]
     Active Substance: DICLOFENAC EPOLAMINE
     Indication: NECK PAIN
     Dosage: 2 DF, 2X/DAY (4 PATCHES A DAY)
     Route: 062
  7. FLECTOR [Suspect]
     Active Substance: DICLOFENAC EPOLAMINE
     Indication: PERIPHERAL SWELLING

REACTIONS (3)
  - Off label use [Unknown]
  - Musculoskeletal stiffness [Not Recovered/Not Resolved]
  - Wrong technique in product usage process [Not Recovered/Not Resolved]

NARRATIVE: CASE EVENT DATE: 1998
